FAERS Safety Report 9988075 (Version 1)
Quarter: 2014Q1

REPORT INFORMATION
  Report Type: Spontaneous
  Country: FR (occurrence: FR)
  Receive Date: 20140308
  Receipt Date: 20140308
  Transmission Date: 20141002
  Serious: Yes (Other)
  Sender: FDA-Public Use
  Company Number: FR-ROCHE-1360848

PATIENT
  Age: 79 Year
  Sex: Female

DRUGS (1)
  1. ROCEPHINE [Suspect]
     Indication: PRODUCT USED FOR UNKNOWN INDICATION
     Route: 042
     Dates: start: 20131221, end: 20131224

REACTIONS (2)
  - Thrombocytopenia [Recovering/Resolving]
  - Eosinophilia [Recovered/Resolved]
